FAERS Safety Report 21513597 (Version 2)
Quarter: 2022Q4

REPORT INFORMATION
  Report Type: Spontaneous
  Country: BR (occurrence: BR)
  Receive Date: 20221027
  Receipt Date: 20221130
  Transmission Date: 20230112
  Serious: Yes (Other)
  Sender: FDA-Public Use
  Company Number: BR-VIIV HEALTHCARE LIMITED-BR2022AMR134929

PATIENT

DRUGS (10)
  1. DOLUTEGRAVIR [Suspect]
     Active Substance: DOLUTEGRAVIR
     Indication: HIV infection
     Dosage: 1 DF, QD, ABOUT 6 YEARS (SINCE 2017)
     Route: 048
     Dates: start: 20170101
  2. LAMIVUDINE\TENOFOVIR [Concomitant]
     Active Substance: LAMIVUDINE\TENOFOVIR
     Indication: HIV infection
     Dosage: 1 DF, QD, ABOUT 6 YEARS (SINCE 2017)
     Dates: start: 2017
  3. DEPAKENE [Concomitant]
     Active Substance: VALPROIC ACID
     Indication: Depression
     Dosage: UNK
  4. DEPAKENE [Concomitant]
     Active Substance: VALPROIC ACID
     Indication: Anxiety
  5. ALPRAZOLAM [Concomitant]
     Active Substance: ALPRAZOLAM
     Indication: Depression
     Dosage: UNK
  6. ALPRAZOLAM [Concomitant]
     Active Substance: ALPRAZOLAM
     Indication: Anxiety
  7. ESCITALOPRAM [Concomitant]
     Active Substance: ESCITALOPRAM OXALATE
     Indication: Depression
     Dosage: UNK
  8. ESCITALOPRAM [Concomitant]
     Active Substance: ESCITALOPRAM OXALATE
     Indication: Anxiety
  9. TRAZODONE HYDROCHLORIDE [Concomitant]
     Active Substance: TRAZODONE HYDROCHLORIDE
     Indication: Depression
     Dosage: UNK
  10. TRAZODONE HYDROCHLORIDE [Concomitant]
     Active Substance: TRAZODONE HYDROCHLORIDE
     Indication: Anxiety

REACTIONS (5)
  - Lipodystrophy acquired [Unknown]
  - Bipolar disorder [Recovering/Resolving]
  - Fat tissue increased [Unknown]
  - Body dysmorphic disorder [Unknown]
  - Weight decreased [Unknown]

NARRATIVE: CASE EVENT DATE: 20190101
